FAERS Safety Report 13880403 (Version 3)
Quarter: 2017Q3

REPORT INFORMATION
  Report Type: Spontaneous
  Country: US (occurrence: US)
  Receive Date: 20170818
  Receipt Date: 20170901
  Transmission Date: 20171127
  Serious: Yes (Death, Hospitalization, Other)
  Sender: FDA-Public Use
  Company Number: US-BAYER-2017-156505

PATIENT
  Age: 58 Year
  Sex: Male

DRUGS (2)
  1. ACETYLSALICYLIC ACID({=100 MG) [Suspect]
     Active Substance: ASPIRIN
  2. RIVAROXABAN [Suspect]
     Active Substance: RIVAROXABAN
     Indication: ATRIAL FIBRILLATION
     Dosage: UNK

REACTIONS (9)
  - Embolic stroke [Fatal]
  - Anaemia [None]
  - Pneumocephalus [Unknown]
  - Shock [Unknown]
  - Upper gastrointestinal haemorrhage [None]
  - Atrio-oesophageal fistula [None]
  - Cardiac arrest [Unknown]
  - Cerebellar haemorrhage [None]
  - Multiple organ dysfunction syndrome [None]
